FAERS Safety Report 12633496 (Version 1)
Quarter: 2016Q3

REPORT INFORMATION
  Report Type: Spontaneous
  Country: US (occurrence: None)
  Receive Date: 20160808
  Receipt Date: 20160808
  Transmission Date: 20161109
  Serious: Yes (Hospitalization)
  Sender: FDA-Public Use
  Company Number: None

PATIENT
  Age: 57 Year
  Sex: Male
  Weight: 79.38 kg

DRUGS (6)
  1. PLAVIX [Concomitant]
     Active Substance: CLOPIDOGREL BISULFATE
  2. XARELTO [Concomitant]
     Active Substance: RIVAROXABAN
  3. TRADJENTA [Concomitant]
     Active Substance: LINAGLIPTIN
  4. INVOKANA [Suspect]
     Active Substance: CANAGLIFLOZIN
     Indication: TYPE 2 DIABETES MELLITUS
     Dates: start: 20151124, end: 20160117
  5. SULFASALAZINE. [Concomitant]
     Active Substance: SULFASALAZINE
  6. LIPITOR [Concomitant]
     Active Substance: ATORVASTATIN CALCIUM

REACTIONS (2)
  - Myocardial infarction [None]
  - Pulmonary thrombosis [None]

NARRATIVE: CASE EVENT DATE: 20160117
